FAERS Safety Report 22187082 (Version 4)
Quarter: 2023Q2

REPORT INFORMATION
  Report Type: Spontaneous
  Country: RU (occurrence: RU)
  Receive Date: 20230407
  Receipt Date: 20230526
  Transmission Date: 20230721
  Serious: Yes (Disabling, Other)
  Sender: FDA-Public Use
  Company Number: RU-002147023-NVSC2023RU069999

PATIENT
  Age: 54 Year
  Sex: Female

DRUGS (9)
  1. BROLUCIZUMAB [Suspect]
     Active Substance: BROLUCIZUMAB
     Indication: Neovascular age-related macular degeneration
     Dosage: 6 MG, ONCE/SINGLE (FIRST ADMINISTRATION)
     Route: 031
     Dates: start: 20230106, end: 20230106
  2. BROLUCIZUMAB [Suspect]
     Active Substance: BROLUCIZUMAB
     Dosage: 6 MG, ONCE/SINGLE (SECOND ADMINISTRATION) (0.05 ML)
     Route: 031
     Dates: start: 20230304, end: 20230304
  3. VANCOMYCIN [Suspect]
     Active Substance: VANCOMYCIN
     Indication: Product used for unknown indication
     Dosage: 1000 MG
     Route: 041
     Dates: start: 20230313
  4. LEVOFLOXACIN [Concomitant]
     Active Substance: LEVOFLOXACIN
     Indication: Antibiotic prophylaxis
     Dosage: 4 DRP, QD (INSTILLATION)
     Route: 065
     Dates: start: 20230103, end: 20230110
  5. LEVOFLOXACIN [Concomitant]
     Active Substance: LEVOFLOXACIN
     Dosage: 4 DRP, QD
     Route: 065
     Dates: start: 20230301, end: 20230320
  6. DEXAMETHASONE [Concomitant]
     Active Substance: DEXAMETHASONE
     Indication: Antibiotic prophylaxis
     Dosage: 4 DRP, QD (INSTILLATION)
     Route: 065
     Dates: start: 20230103, end: 20230110
  7. DEXAMETHASONE [Concomitant]
     Active Substance: DEXAMETHASONE
     Dosage: 4 DRP, QD
     Route: 065
     Dates: start: 20230301, end: 20230320
  8. BROMISOVAL\PHENOBARBITAL SODIUM [Concomitant]
     Active Substance: BROMISOVAL\PHENOBARBITAL SODIUM
     Indication: Self-medication
     Dosage: UNK
     Route: 048
  9. RESLIP [Concomitant]
     Indication: Self-medication
     Dosage: UNK
     Route: 048

REACTIONS (8)
  - Retinal vasculitis [Not Recovered/Not Resolved]
  - Vision blurred [Not Recovered/Not Resolved]
  - Visual impairment [Not Recovered/Not Resolved]
  - Blindness unilateral [Not Recovered/Not Resolved]
  - Uveitis [Recovered/Resolved]
  - Retinal vascular occlusion [Recovering/Resolving]
  - Anaphylactic shock [Unknown]
  - Iridocyclitis [Not Recovered/Not Resolved]

NARRATIVE: CASE EVENT DATE: 20230309
